FAERS Safety Report 22661065 (Version 1)
Quarter: 2023Q2

REPORT INFORMATION
  Report Type: Spontaneous
  Country: US (occurrence: US)
  Receive Date: 20230630
  Receipt Date: 20230630
  Transmission Date: 20230721
  Serious: No
  Sender: FDA-Public Use
  Company Number: US-JAZZ PHARMACEUTICALS-2023-US-010271

PATIENT
  Sex: Female
  Weight: 56.699 kg

DRUGS (2)
  1. EPIDIOLEX [Suspect]
     Active Substance: CANNABIDIOL
     Indication: Rett syndrome
     Dosage: 5.5 MILLILITER, BID
     Route: 048
     Dates: start: 202001
  2. CLOBAZAM [Concomitant]
     Active Substance: CLOBAZAM
     Indication: Rett syndrome

REACTIONS (6)
  - Eye movement disorder [Unknown]
  - Facial discomfort [Unknown]
  - Drooling [Unknown]
  - Psychomotor hyperactivity [Unknown]
  - Fall [Unknown]
  - Off label use [Unknown]
